FAERS Safety Report 23043876 (Version 1)
Quarter: 2023Q4

REPORT INFORMATION
  Report Type: Spontaneous
  Country: US (occurrence: US)
  Receive Date: 20231009
  Receipt Date: 20231009
  Transmission Date: 20240110
  Serious: No
  Sender: FDA-Public Use
  Company Number: US-SUN PHARMACEUTICAL INDUSTRIES LTD-2023R1-379778

PATIENT
  Sex: Female

DRUGS (1)
  1. LORATADINE AND PSEUDOEPHEDRINE SULFATE [Suspect]
     Active Substance: LORATADINE\PSEUDOEPHEDRINE SULFATE
     Indication: Nasal decongestion therapy
     Dosage: UNK
     Route: 065

REACTIONS (4)
  - Rhinorrhoea [Recovering/Resolving]
  - Eye pruritus [Recovering/Resolving]
  - Throat irritation [Recovering/Resolving]
  - Hypersensitivity [Recovering/Resolving]
